FAERS Safety Report 9095156 (Version 1)
Quarter: 2013Q1

REPORT INFORMATION
  Report Type: Spontaneous
  Country: US (occurrence: None)
  Receive Date: 20130123
  Receipt Date: 20130123
  Transmission Date: 20140127
  Serious: Yes (Other)
  Sender: FDA-Public Use
  Company Number: PI-08747

PATIENT
  Age: 7 Year
  Sex: Female

DRUGS (2)
  1. CHLORAPREP [Suspect]
     Indication: PREOPERATIVE CARE
     Route: 061
     Dates: start: 20130101
  2. CHLORAPREP [Suspect]
     Indication: THERAPEUTIC SKIN CARE TOPICAL
     Route: 061
     Dates: start: 20130101

REACTIONS (5)
  - Rash erythematous [None]
  - Rash macular [None]
  - Rash papular [None]
  - Rash [None]
  - Rash [None]
